FAERS Safety Report 16451131 (Version 1)
Quarter: 2019Q3

REPORT INFORMATION
  Report Type: Spontaneous
  Country: US (occurrence: US)
  Receive Date: 20190618
  Receipt Date: 20190618
  Transmission Date: 20191004
  Serious: Yes (Hospitalization, Disabling)
  Sender: FDA-Public Use
  Company Number: None

PATIENT
  Age: 50 Year
  Sex: Female
  Weight: 99 kg

DRUGS (11)
  1. BUPROPION. [Concomitant]
     Active Substance: BUPROPION
  2. OMEPRAZOLE. [Concomitant]
     Active Substance: OMEPRAZOLE
  3. GAS-X [Concomitant]
     Active Substance: DIMETHICONE
  4. CLONAZEPAM. [Suspect]
     Active Substance: CLONAZEPAM
     Indication: PANIC DISORDER
     Dosage: ?          QUANTITY:60 TABLET(S);?
     Route: 048
     Dates: start: 20031130, end: 20171130
  5. MULTIVITAMIN [Concomitant]
     Active Substance: VITAMINS
  6. VISTARIL [Concomitant]
     Active Substance: HYDROXYZINE PAMOATE
  7. TRAZODONE [Concomitant]
     Active Substance: TRAZODONE HYDROCHLORIDE
  8. REXULTI [Concomitant]
     Active Substance: BREXPIPRAZOLE
  9. ABILIFY [Concomitant]
     Active Substance: ARIPIPRAZOLE
  10. IBUPROFEN. [Concomitant]
     Active Substance: IBUPROFEN
  11. CLONAZEPAM. [Suspect]
     Active Substance: CLONAZEPAM
     Indication: ANXIETY
     Dosage: ?          QUANTITY:60 TABLET(S);?
     Route: 048
     Dates: start: 20031130, end: 20171130

REACTIONS (32)
  - Suicidal ideation [None]
  - Anhedonia [None]
  - Nausea [None]
  - Tachyphrenia [None]
  - Anxiety [None]
  - Dizziness [None]
  - Confusional state [None]
  - Drug dependence [None]
  - Panic disorder [None]
  - Musculoskeletal stiffness [None]
  - Vision blurred [None]
  - Agitation [None]
  - Paraesthesia [None]
  - Irritability [None]
  - Headache [None]
  - Hypertension [None]
  - Fatigue [None]
  - Coordination abnormal [None]
  - Fear [None]
  - Anger [None]
  - Ageusia [None]
  - Tremor [None]
  - Insomnia [None]
  - Myalgia [None]
  - Amnesia [None]
  - Tinnitus [None]
  - Nightmare [None]
  - Hostility [None]
  - Mood swings [None]
  - Parosmia [None]
  - Depression [None]
  - Apathy [None]

NARRATIVE: CASE EVENT DATE: 20171101
